FAERS Safety Report 7675105-2 (Version None)
Quarter: 2011Q3

REPORT INFORMATION
  Report Type: 
  Country: None (occurrence: None)
  Receive Date: 20110810
  Receipt Date: 20110808
  Transmission Date: 20111222
  Serious: Yes (Hospitalization)
  Sender: FDA-Public Use
  Company Number: US-MERCK-1107USA01950

PATIENT
  Sex: Male

DRUGS (2)
  1. INVANZ [Suspect]
     Indication: DEBRIDEMENT
     Route: 042
     Dates: start: 20110626, end: 20110709
  2. AMIODARONA [Concomitant]
     Indication: VENTRICULAR ARRHYTHMIA
     Route: 065

REACTIONS (3)
  - HEPATIC STEATOSIS [None]
  - CHOLELITHIASIS [None]
  - LIVER FUNCTION TEST ABNORMAL [None]
